FAERS Safety Report 5173509-3 (Version None)
Quarter: 2006Q4

REPORT INFORMATION
  Report Type: 
  Country: None (occurrence: None)
  Receive Date: 20061214
  Receipt Date: 20061011
  Transmission Date: 20070319
  Serious: No
  Sender: FDA-Public Use
  Company Number: US-AMGEN-US196588

PATIENT
  Sex: Female

DRUGS (2)
  1. ENBREL [Suspect]
     Indication: PSORIATIC ARTHROPATHY
     Route: 058
     Dates: start: 20060627
  2. PLAQUENIL [Concomitant]
     Dates: start: 20030101

REACTIONS (3)
  - CONDITION AGGRAVATED [None]
  - PRURITUS GENERALISED [None]
  - PSORIASIS [None]
